FAERS Safety Report 8357474-3 (Version None)
Quarter: 2012Q2

REPORT INFORMATION
  Report Type: 
  Country: None (occurrence: None)
  Receive Date: 20120511
  Receipt Date: 20120426
  Transmission Date: 20120825
  Serious: Yes (Other)
  Sender: FDA-Public Use
  Company Number: US-1191946

PATIENT
  Age: 85 Year
  Sex: Female

DRUGS (6)
  1. VIGAMOX [Suspect]
     Indication: ENDOPHTHALMITIS
     Dosage: SEE IMAGE
     Route: 047
  2. VIGAMOX [Suspect]
     Indication: ANTIBIOTIC PROPHYLAXIS
     Dosage: SEE IMAGE
     Route: 047
  3. CEFTAZIDIME INJECTION [Concomitant]
  4. VANCOMYCIN EYE DROPS [Concomitant]
  5. VANCOMYCIN [Concomitant]
  6. VANCOMYCIN EYE DROPS [Concomitant]

REACTIONS (6)
  - SCLERAL DISORDER [None]
  - VISUAL ACUITY REDUCED [None]
  - SCLERAL THINNING [None]
  - EYE PAIN [None]
  - CONJUNCTIVAL HYPERAEMIA [None]
  - ENDOPHTHALMITIS [None]
